FAERS Safety Report 23940558 (Version 1)
Quarter: 2024Q2

REPORT INFORMATION
  Report Type: Spontaneous
  Country: GB (occurrence: GB)
  Receive Date: 20240605
  Receipt Date: 20240605
  Transmission Date: 20240716
  Serious: Yes (Life-Threatening, Other)
  Sender: FDA-Public Use
  Company Number: GB-MHRA-TPP8503116C9067226YC1716895361581

PATIENT
  Age: 60 Year
  Sex: Male
  Weight: 71 kg

DRUGS (9)
  1. LISINOPRIL [Suspect]
     Active Substance: LISINOPRIL
     Indication: Ill-defined disorder
     Dosage: DOSE FORM REPORTED: TPP YC - PLEASE RECLASSIFY
     Route: 065
     Dates: start: 20240508
  2. LORATADINE [Concomitant]
     Active Substance: LORATADINE
     Indication: Ill-defined disorder
     Dosage: TAKE ONE DAILY FOR AT LEAST 3 TO 6 MONTHS AS DI..., DOSE FORM REPORTED: TPP YC - PLEASE RECLASSIFY
     Dates: start: 20240514
  3. LISINOPRIL [Concomitant]
     Active Substance: LISINOPRIL
     Indication: Ill-defined disorder
     Dosage: TAKE ONE DAILY, DOSE FORM REPORTED: TPP YC - PLEASE RECLASSIFY
     Dates: start: 20230606, end: 20240509
  4. ALBUTEROL [Concomitant]
     Active Substance: ALBUTEROL
     Indication: Ill-defined disorder
     Dosage: TIME INTERVAL: AS NECESSARY: INHALE 2 DOSES AS NEEDED, DOSE FORM REPORTED: TPP YC - PLEASE RECLAS...
     Route: 055
     Dates: start: 20230606
  5. ATORVASTATIN [Concomitant]
     Active Substance: ATORVASTATIN
     Indication: Ill-defined disorder
     Dosage: TAKE ONE DAILY, DOSE FORM REPORTED: TPP YC - PLEASE RECLASSIFY
     Dates: start: 20230824
  6. EPIPEN [Concomitant]
     Active Substance: EPINEPHRINE
     Indication: Ill-defined disorder
     Dosage: USE AS DIRECTED, DOSE FORM REPORTED: TPP YC - PLEASE RECLASSIFY
     Dates: start: 20240514
  7. CHLORPHENIRAMINE MALEATE [Concomitant]
     Active Substance: CHLORPHENIRAMINE MALEATE
     Indication: Ill-defined disorder
     Dosage: 4MG GIVEN AS IMMEDIATELY DOSE 15.15, DOSE FORM REPORTED: TPP YC - PLEASE RECLASSIFY
     Dates: start: 20240507, end: 20240508
  8. AMLODIPINE [Concomitant]
     Active Substance: AMLODIPINE BESYLATE
     Indication: Ill-defined disorder
     Dosage: TAKE ONE DAILY, DOSE FORM REPORTED: TPP YC - PLEASE RECLASSIFY
     Dates: start: 20240509
  9. BECLOMETHASONE\FORMOTEROL [Concomitant]
     Active Substance: BECLOMETHASONE\FORMOTEROL
     Indication: Ill-defined disorder
     Dosage: 1 PUFF TWICE A DAY, DOSE FORM REPORTED: TPP YC - PLEASE RECLASSIFY
     Dates: start: 20230606

REACTIONS (1)
  - Angioedema [Recovered/Resolved]

NARRATIVE: CASE EVENT DATE: 20240508
